FAERS Safety Report 8226203-6 (Version None)
Quarter: 2012Q1

REPORT INFORMATION
  Report Type: 
  Country: None (occurrence: None)
  Receive Date: 20120307
  Receipt Date: 20100629
  Transmission Date: 20120608
  Serious: No
  Sender: FDA-Public Use
  Company Number: PHHY2010US42822

PATIENT
  Age: 48 Year
  Sex: Male

DRUGS (1)
  1. AFINITOR [Suspect]
     Indication: RENAL CANCER
     Dosage: 10 MG, QD, ORAL
     Route: 048

REACTIONS (4)
  - SKIN DISORDER [None]
  - DECUBITUS ULCER [None]
  - RASH [None]
  - STOMATITIS [None]
